FAERS Safety Report 11635666 (Version 2)
Quarter: 2015Q4

REPORT INFORMATION
  Report Type: Spontaneous
  Country: US (occurrence: US)
  Receive Date: 20151016
  Receipt Date: 20151021
  Transmission Date: 20160304
  Serious: No
  Sender: FDA-Public Use
  Company Number: US-PFIZER INC-2015341102

PATIENT
  Age: 59 Year
  Sex: Female
  Weight: 56.69 kg

DRUGS (2)
  1. CELECOXIB. [Suspect]
     Active Substance: CELECOXIB
     Indication: ARTHRITIS
  2. CELECOXIB. [Suspect]
     Active Substance: CELECOXIB
     Indication: KNEE OPERATION
     Dosage: UNK, 1X/DAY
     Dates: start: 201501

REACTIONS (1)
  - Drug ineffective [Not Recovered/Not Resolved]
